FAERS Safety Report 8588197-3 (Version None)
Quarter: 2012Q3

REPORT INFORMATION
  Report Type: 
  Country: None (occurrence: None)
  Receive Date: 20120731
  Receipt Date: 20120718
  Transmission Date: 20120928
  Serious: Yes (Other)
  Sender: FDA-Public Use
  Company Number: DSU-2012-05787

PATIENT
  Age: 51 Year
  Sex: Male
  Weight: 147.419 kg

DRUGS (1)
  1. TRIBENZOR [Suspect]
     Indication: HYPERTENSION
     Dosage: ORAL
     Route: 048

REACTIONS (7)
  - HEADACHE [None]
  - NECK PAIN [None]
  - CHEST PAIN [None]
  - JOINT SWELLING [None]
  - EYE MOVEMENT DISORDER [None]
  - BRAIN NEOPLASM BENIGN [None]
  - OEDEMA PERIPHERAL [None]
